FAERS Safety Report 12741013 (Version 1)
Quarter: 2016Q3

REPORT INFORMATION
  Report Type: Spontaneous
  Country: US (occurrence: US)
  Receive Date: 20160914
  Receipt Date: 20160914
  Transmission Date: 20161109
  Serious: Yes (Other)
  Sender: FDA-Public Use
  Company Number: US-RANBAXY-2013US-74529

PATIENT
  Age: 3 Year
  Sex: Male

DRUGS (1)
  1. TRAMADOL. [Suspect]
     Active Substance: TRAMADOL
     Indication: PRODUCT USED FOR UNKNOWN INDICATION
     Dosage: UNK
     Route: 048

REACTIONS (7)
  - Drug screen false positive [Unknown]
  - Somnolence [Unknown]
  - Respiration abnormal [Unknown]
  - Vomiting [Unknown]
  - Ataxia [Unknown]
  - Hyporeflexia [Unknown]
  - Overdose [Unknown]
